FAERS Safety Report 20299779 (Version 1)
Quarter: 2022Q1

REPORT INFORMATION
  Report Type: Spontaneous
  Country: US (occurrence: None)
  Receive Date: 20220105
  Receipt Date: 20220105
  Transmission Date: 20220423
  Serious: No
  Sender: FDA-Public Use
  Company Number: 2021A859830

PATIENT
  Age: 48 Year
  Sex: Female

DRUGS (2)
  1. BUDESONIDE\FORMOTEROL [Suspect]
     Active Substance: BUDESONIDE\FORMOTEROL
     Indication: Asthma
     Dosage: EVERY 12 HOURS
     Route: 055
     Dates: start: 2021
  2. BUDESONIDE\FORMOTEROL [Suspect]
     Active Substance: BUDESONIDE\FORMOTEROL
     Indication: Asthma
     Dosage: UNKNOWN GENERIC UNKNOWN
     Route: 065
     Dates: start: 2021

REACTIONS (12)
  - Nasal congestion [Not Recovered/Not Resolved]
  - Nasal polyps [Unknown]
  - Chest discomfort [Unknown]
  - Dyspnoea [Unknown]
  - Wheezing [Unknown]
  - Asthma [Recovered/Resolved]
  - Heart rate increased [Unknown]
  - Device delivery system issue [Unknown]
  - Device failure [Unknown]
  - Device use issue [Unknown]
  - Product use issue [Unknown]
  - Drug ineffective [Not Recovered/Not Resolved]

NARRATIVE: CASE EVENT DATE: 20210101
